FAERS Safety Report 4706155-3 (Version None)
Quarter: 2005Q2

REPORT INFORMATION
  Report Type: 
  Country: None (occurrence: None)
  Receive Date: 20050204
  Receipt Date: 20050204
  Transmission Date: 20051028
  Serious: Yes (Other)
  Sender: FDA-Public Use
  Company Number: None

PATIENT
  Age: 54 Year
  Sex: Female
  Weight: 135.6255 kg

DRUGS (5)
  1. NAPROXEN [Suspect]
     Indication: OSTEOARTHRITIS
     Dosage: 275MG 2 BID PO
     Route: 048
     Dates: start: 20020101
  2. ACE INHIBITOR [Concomitant]
  3. HYDROCHLOROTHIAZIDE [Concomitant]
  4. PROPOXYPHENE [Concomitant]
  5. OMEPRAZOLE [Concomitant]

REACTIONS (2)
  - DRUG INEFFECTIVE [None]
  - NAUSEA [None]
